FAERS Safety Report 22266991 (Version 1)
Quarter: 2023Q2

REPORT INFORMATION
  Report Type: Spontaneous
  Country: US (occurrence: None)
  Receive Date: 20230428
  Receipt Date: 20230428
  Transmission Date: 20230721
  Serious: No
  Sender: FDA-Public Use
  Company Number: 2023A075338

PATIENT
  Sex: Female
  Weight: 77.1 kg

DRUGS (1)
  1. BREZTRI [Suspect]
     Active Substance: BUDESONIDE\FORMOTEROL\GLYCOPYRROLATE
     Indication: Asthma
     Dosage: 160/9/4.8 MCG, 2 INHALATIONS, 2 TIMES A DAY
     Route: 055

REACTIONS (2)
  - Back pain [Unknown]
  - Product use issue [Unknown]
